FAERS Safety Report 6665552-X (Version None)
Quarter: 2010Q2

REPORT INFORMATION
  Report Type: 
  Country: None (occurrence: None)
  Receive Date: 20100402
  Receipt Date: 20100323
  Transmission Date: 20101027
  Serious: Yes (Death, Hospitalization, Other)
  Sender: FDA-Public Use
  Company Number: PHHY2010DE19206

PATIENT
  Sex: Male
  Weight: 76 kg

DRUGS (6)
  1. ALISKIREN ALI+ [Suspect]
     Indication: HYPERTENSION
     Dosage: 300 MG/D
     Dates: start: 20081203
  2. STARLIX [Suspect]
     Indication: DIABETES MELLITUS
     Dosage: 120 MG/D
  3. CHOLESTEROL- AND TRIGLYCERIDE REDUCERS [Concomitant]
  4. PENTAERYTHRITOL TETRANITRATE [Concomitant]
     Indication: CORONARY ARTERY DISEASE
     Dosage: 100 MG/D
  5. FUROSEMIDE [Concomitant]
     Indication: RENAL FAILURE
     Dosage: 1 DF/D
  6. MOXONIDINE [Concomitant]
     Indication: HYPERTENSION
     Dosage: 1 DF, BID

REACTIONS (15)
  - BLOOD CREATININE INCREASED [None]
  - BLOOD GLUCOSE INCREASED [None]
  - BLOOD PRESSURE INCREASED [None]
  - CARDIAC FAILURE [None]
  - CORONARY ARTERY DISEASE [None]
  - DIABETIC NEPHROPATHY [None]
  - DIABETIC NEUROPATHY [None]
  - DYSPNOEA [None]
  - FALL [None]
  - FEMORAL NECK FRACTURE [None]
  - HAEMOGLOBIN DECREASED [None]
  - MICROALBUMINURIA [None]
  - PNEUMONIA [None]
  - RENAL DISORDER [None]
  - RENAL FAILURE [None]
